FAERS Safety Report 25024140 (Version 1)
Quarter: 2025Q1

REPORT INFORMATION
  Report Type: Spontaneous
  Country: US (occurrence: US)
  Receive Date: 20250228
  Receipt Date: 20250228
  Transmission Date: 20250409
  Serious: No
  Sender: AUROBINDO
  Company Number: US-AUROBINDO-AUR-APL-2024-035543

PATIENT
  Age: 77 Year
  Sex: Male
  Weight: 64.41 kg

DRUGS (1)
  1. DOFETILIDE [Suspect]
     Active Substance: DOFETILIDE
     Indication: Product used for unknown indication
     Route: 065
     Dates: start: 20231203

REACTIONS (2)
  - Musculoskeletal disorder [Unknown]
  - Pain [Unknown]
